FAERS Safety Report 4378727-X (Version None)
Quarter: 2004Q2

REPORT INFORMATION
  Report Type: 
  Country: None (occurrence: None)
  Receive Date: 20040609
  Receipt Date: 20020510
  Transmission Date: 20050107
  Serious: Yes (Death, Hospitalization)
  Sender: FDA-Public Use
  Company Number: B01200200647

PATIENT
  Age: 75 Year
  Sex: Male

DRUGS (4)
  1. FLUOROURACIL [Suspect]
     Indication: COLORECTAL CANCER
     Dosage: SEE IMAGE
     Route: 042
     Dates: start: 20020503, end: 20020503
  2. LEUCOVORIN CALCIUM [Suspect]
     Dosage: SEE IMAGE
     Route: 042
     Dates: start: 20020503, end: 20020503
  3. ADIZEM (DILTIAZEM HCL) [Concomitant]
  4. BENDROFLUAZIDE [Concomitant]

REACTIONS (6)
  - CIRCULATORY COLLAPSE [None]
  - GASTRIC PERFORATION [None]
  - HAEMOGLOBIN DECREASED [None]
  - LEUKOPENIA [None]
  - NEUTROPENIC SEPSIS [None]
  - PERFORATED ULCER [None]
